FAERS Safety Report 6287856-5 (Version None)
Quarter: 2009Q3

REPORT INFORMATION
  Report Type: 
  Country: None (occurrence: None)
  Receive Date: 20090729
  Receipt Date: 20071126
  Transmission Date: 20100115
  Serious: Yes (Hospitalization, Other)
  Sender: FDA-Public Use
  Company Number: US-ASTRAZENECA-2006UW11525

PATIENT
  Age: 9092 Day
  Sex: Male
  Weight: 111.6 kg

DRUGS (24)
  1. SEROQUEL [Suspect]
     Indication: BIPOLAR DISORDER
     Dosage: 200 MG TO 400 MG
     Route: 048
     Dates: start: 20011011, end: 20051101
  2. SEROQUEL [Suspect]
     Indication: DEPRESSION
     Dosage: 200 MG TO 400 MG
     Route: 048
     Dates: start: 20011011, end: 20051101
  3. SEROQUEL [Suspect]
     Indication: SLEEP DISORDER
     Dosage: 200 MG TO 400 MG
     Route: 048
     Dates: start: 20011011, end: 20051101
  4. SEROQUEL [Suspect]
     Dosage: 2MG - 400MG
     Route: 048
     Dates: start: 20011013
  5. SEROQUEL [Suspect]
     Dosage: 2MG - 400MG
     Route: 048
     Dates: start: 20011013
  6. SEROQUEL [Suspect]
     Dosage: 2MG - 400MG
     Route: 048
     Dates: start: 20011013
  7. ZYPREXA [Concomitant]
     Route: 048
     Dates: start: 20021218
  8. ZYPREXA [Concomitant]
     Route: 048
     Dates: start: 20030506
  9. DEPAKOTE [Concomitant]
     Route: 048
     Dates: start: 20021010
  10. EFFEXOR [Concomitant]
     Route: 048
     Dates: start: 20021010
  11. PROTONIX [Concomitant]
     Route: 048
     Dates: start: 20021113
  12. ATENOLOL [Concomitant]
     Route: 048
     Dates: start: 20021113
  13. FLUOXETINE [Concomitant]
     Route: 048
     Dates: start: 20021218
  14. LITHIUM CARBONATE [Concomitant]
     Route: 048
     Dates: start: 20021218
  15. PREVACID [Concomitant]
     Route: 048
     Dates: start: 20030211
  16. HYOSCYAMINE [Concomitant]
     Dosage: 0.125 MG AS REQUIRED
     Route: 060
     Dates: start: 20030211
  17. IMITREX [Concomitant]
     Indication: MIGRAINE
     Route: 048
     Dates: start: 20030211
  18. LISINOPRIL [Concomitant]
     Route: 048
     Dates: start: 20031027
  19. ZOLOFT [Concomitant]
     Route: 048
     Dates: start: 20060622
  20. ZOLOFT [Concomitant]
     Route: 048
     Dates: start: 20060629
  21. INSULIN [Concomitant]
     Dosage: 22-50 UNITS MORNING AND 12-50 UNITS EVENING FLUCTUATING
     Route: 058
     Dates: start: 20031001
  22. RISPERDAL [Concomitant]
     Dates: start: 20010113
  23. PAXIL [Concomitant]
     Dates: start: 20010113
  24. TYLENOL [Concomitant]
     Indication: HEADACHE
     Dosage: 2 TABLETS 6 HOURLY
     Route: 048
     Dates: start: 20021025

REACTIONS (17)
  - ACIDOSIS [None]
  - ARTHRALGIA [None]
  - DIABETES MELLITUS [None]
  - DIABETES MELLITUS INADEQUATE CONTROL [None]
  - DIABETIC KETOACIDOSIS [None]
  - GASTROENTERITIS [None]
  - HYPERGLYCAEMIA [None]
  - INGROWING NAIL [None]
  - IRRITABLE BOWEL SYNDROME [None]
  - JOINT INJURY [None]
  - MIGRAINE [None]
  - OVERDOSE [None]
  - PAIN IN EXTREMITY [None]
  - SUICIDAL IDEATION [None]
  - SUICIDE ATTEMPT [None]
  - TYPE 1 DIABETES MELLITUS [None]
  - TYPE 2 DIABETES MELLITUS [None]
